FAERS Safety Report 19574575 (Version 3)
Quarter: 2022Q3

REPORT INFORMATION
  Report Type: Spontaneous
  Country: US (occurrence: US)
  Receive Date: 20210719
  Receipt Date: 20220913
  Transmission Date: 20221027
  Serious: No
  Sender: FDA-Public Use
  Company Number: US-BRISTOL-MYERS SQUIBB COMPANY-BMS-2021-069958

PATIENT
  Age: 59 Year
  Sex: Female

DRUGS (2)
  1. ORENCIA [Suspect]
     Active Substance: ABATACEPT
     Indication: Rheumatoid arthritis
     Dosage: 125 MILLIGRAM, QWK
     Route: 058
     Dates: start: 20200618
  2. ORENCIA [Suspect]
     Active Substance: ABATACEPT
     Dosage: FREQ: EVERY WEEK
     Route: 058
     Dates: start: 201906

REACTIONS (2)
  - Joint swelling [Unknown]
  - Arthralgia [Unknown]
